FAERS Safety Report 15487810 (Version 2)
Quarter: 2018Q4

REPORT INFORMATION
  Report Type: Spontaneous
  Country: BE (occurrence: BE)
  Receive Date: 20181011
  Receipt Date: 20181015
  Transmission Date: 20190205
  Serious: Yes (Hospitalization, Other)
  Sender: FDA-Public Use
  Company Number: BE-JNJFOC-20181008752

PATIENT
  Age: 80 Year
  Sex: Male

DRUGS (1)
  1. XARELTO [Suspect]
     Active Substance: RIVAROXABAN
     Indication: ATRIAL FIBRILLATION
     Route: 048

REACTIONS (10)
  - Lung neoplasm malignant [Unknown]
  - Urinary bladder haemorrhage [Unknown]
  - Lung disorder [Unknown]
  - Platelet count decreased [Unknown]
  - Heart rate increased [Unknown]
  - Dyspnoea [Unknown]
  - Urinary bladder haemorrhage [Recovered/Resolved]
  - Bladder cancer [Unknown]
  - Red blood cell count decreased [Unknown]
  - Oxygen saturation decreased [Unknown]

NARRATIVE: CASE EVENT DATE: 2016
